FAERS Safety Report 8863316 (Version 1)
Quarter: 2012Q4

REPORT INFORMATION
  Report Type: Report from Study
  Country: RU (occurrence: RU)
  Receive Date: 20121025
  Receipt Date: 20121025
  Transmission Date: 20130627
  Serious: Yes (Other)
  Sender: FDA-Public Use
  Company Number: RU-GLAXOSMITHKLINE-A0944495A

PATIENT
  Age: 42 Year
  Sex: Female
  Weight: 74.6 kg

DRUGS (4)
  1. BELIMUMAB [Suspect]
     Indication: SYSTEMIC LUPUS ERYTHEMATOSUS
     Dosage: 10MGK Every 28 days
     Route: 042
     Dates: start: 20081222, end: 20110808
  2. PREDNISONE [Concomitant]
     Indication: SYSTEMIC LUPUS ERYTHEMATOSUS
     Dosage: 5MG Per day
     Route: 048
     Dates: start: 20081209
  3. PREDNISOLONE [Concomitant]
     Dosage: 15MG Per day
     Route: 048
     Dates: start: 20081201, end: 20081208
  4. PREDNISOLONE [Concomitant]
     Dosage: 5MG Per day
     Route: 048
     Dates: start: 20071203, end: 20081130

REACTIONS (1)
  - Rectal cancer [Recovered/Resolved]
